FAERS Safety Report 7806148-3 (Version None)
Quarter: 2011Q4

REPORT INFORMATION
  Report Type: 
  Country: None (occurrence: None)
  Receive Date: 20111011
  Receipt Date: 20111007
  Transmission Date: 20120403
  Serious: Yes (Hospitalization)
  Sender: FDA-Public Use
  Company Number: US-PFIZER INC-2011240354

PATIENT
  Age: 60 Year
  Sex: Female
  Weight: 70.295 kg

DRUGS (1)
  1. CELEBREX [Suspect]
     Indication: ARTHRITIS
     Dosage: UNK , DAILY
     Route: 048
     Dates: start: 20090101

REACTIONS (2)
  - FLUID RETENTION [None]
  - SWELLING [None]
